FAERS Safety Report 16015454 (Version 3)
Quarter: 2019Q3

REPORT INFORMATION
  Report Type: Report from Study
  Country: US (occurrence: US)
  Receive Date: 20190228
  Receipt Date: 20190701
  Transmission Date: 20191004
  Serious: Yes (Other)
  Sender: FDA-Public Use
  Company Number: US-ROCHE-2273108

PATIENT
  Age: 43 Year
  Sex: Female
  Weight: 72.64 kg

DRUGS (9)
  1. MYRBETRIQ [Concomitant]
     Active Substance: MIRABEGRON
     Indication: HYPERTONIC BLADDER
     Dosage: YES
     Route: 065
  2. OCREVUS [Suspect]
     Active Substance: OCRELIZUMAB
     Indication: RELAPSING-REMITTING MULTIPLE SCLEROSIS
     Dosage: HALF DOSE ;ONGOING: NO, ?TREATMENT DATE: 29/MAR/2019
     Route: 042
     Dates: start: 201803
  3. VITAMIN D3 [Concomitant]
     Active Substance: CHOLECALCIFEROL
     Route: 048
  4. METAMUCIL [Concomitant]
     Active Substance: PLANTAGO SEED
  5. NOVANTRONE [Concomitant]
     Active Substance: MITOXANTRONE HYDROCHLORIDE
  6. ACIDOPHILUS [Concomitant]
     Active Substance: LACTOBACILLUS ACIDOPHILUS
  7. CRANBERRY [VACCINIUM SPP.] [Concomitant]
     Route: 048
  8. OCREVUS [Suspect]
     Active Substance: OCRELIZUMAB
     Dosage: FULL DOSE ;ONGOING: YES
     Route: 065
     Dates: start: 20180919
  9. BACLOFEN. [Concomitant]
     Active Substance: BACLOFEN
     Indication: MUSCLE SPASTICITY
     Route: 065

REACTIONS (1)
  - Herpes zoster [Recovered/Resolved]

NARRATIVE: CASE EVENT DATE: 20190216
